FAERS Safety Report 21870500 (Version 1)
Quarter: 2023Q1

REPORT INFORMATION
  Report Type: Spontaneous
  Country: US (occurrence: None)
  Receive Date: 20230113
  Receipt Date: 20230113
  Transmission Date: 20230417
  Serious: Yes (Hospitalization)
  Sender: FDA-Public Use
  Company Number: None

PATIENT
  Age: 61 Year
  Sex: Male

DRUGS (1)
  1. EVEROLIMUS [Suspect]
     Active Substance: EVEROLIMUS
     Dosage: FREQUENCY : DAILY;?
     Route: 048

REACTIONS (5)
  - Unresponsive to stimuli [None]
  - Sepsis [None]
  - Liver abscess [None]
  - Infected neoplasm [None]
  - Complication associated with device [None]

NARRATIVE: CASE EVENT DATE: 20221231
